FAERS Safety Report 12206416 (Version 1)
Quarter: 2016Q1

REPORT INFORMATION
  Report Type: Spontaneous
  Country: US (occurrence: None)
  Receive Date: 20160323
  Receipt Date: 20160323
  Transmission Date: 20160526
  Serious: No
  Sender: FDA-Public Use
  Company Number: None

PATIENT

DRUGS (1)
  1. BETIMOL [Suspect]
     Active Substance: TIMOLOL

REACTIONS (1)
  - Hallucination, visual [None]
